FAERS Safety Report 8560417 (Version 2)
Quarter: 2012Q4

REPORT INFORMATION
  Report Type: 
  Country: FR (occurrence: FR)
  Receive Date: 20120514
  Receipt Date: 20121026
  Transmission Date: 20130627
  Serious: Yes (Hospitalization)
  Sender: FDA-Public Use
  Company Number: PHHY2012FR040109

PATIENT
  Age: 85 Year
  Sex: Female

DRUGS (10)
  1. LEPONEX [Suspect]
     Indication: DEMENTIA WITH LEWY BODIES
     Dosage: 25 mg, QD
     Route: 048
     Dates: start: 20120305, end: 20120405
  2. ESCITALOPRAM [Concomitant]
     Dosage: 10 mg, per day
  3. ARICEPT [Concomitant]
     Dosage: 5 mg, UNK
  4. SERESTA [Concomitant]
     Dosage: 10 mg, UNK
  5. LEVOTHYROX [Concomitant]
     Dosage: 50 ug, UNK
  6. OXYBUTYNIN [Concomitant]
     Dosage: 2 DF, per day
  7. DOMPERIDONE [Concomitant]
     Dosage: 10 mg, UNK
  8. NISISCO [Concomitant]
     Dosage: 160 mg/12.5 mg
  9. DOLIPRANE [Concomitant]
     Dosage: UNK UKN, UNK
  10. MOVICOL [Concomitant]
     Dosage: UNK UKN, UNK

REACTIONS (6)
  - Gait disturbance [Unknown]
  - Lymphopenia [Recovered/Resolved]
  - Condition aggravated [Recovered/Resolved]
  - Visual impairment [Unknown]
  - Hypotension [Unknown]
  - Oedema peripheral [Unknown]
